FAERS Safety Report 25643627 (Version 1)
Quarter: 2025Q3

REPORT INFORMATION
  Report Type: Report from Study
  Country: US (occurrence: US)
  Receive Date: 20250805
  Receipt Date: 20250805
  Transmission Date: 20251020
  Serious: Yes (Death, Hospitalization)
  Sender: ABBVIE
  Company Number: US-ABBVIE-6400432

PATIENT
  Sex: Female

DRUGS (1)
  1. SKYRIZI [Suspect]
     Active Substance: RISANKIZUMAB-RZAA
     Indication: Crohn^s disease
     Route: 058
     Dates: start: 20231202

REACTIONS (5)
  - Intestinal obstruction [Fatal]
  - Ulcer [Unknown]
  - Crohn^s disease [Unknown]
  - Rash [Not Recovered/Not Resolved]
  - Localised infection [Unknown]
